FAERS Safety Report 6785859-5 (Version None)
Quarter: 2010Q2

REPORT INFORMATION
  Report Type: 
  Country: None (occurrence: None)
  Receive Date: 20100623
  Receipt Date: 20100611
  Transmission Date: 20101027
  Serious: Yes (Other)
  Sender: FDA-Public Use
  Company Number: DE-PFIZER INC-2010073146

PATIENT
  Age: 46 Year
  Sex: Female

DRUGS (3)
  1. CLINDAMYCIN HCL [Suspect]
     Indication: TOOTH ABSCESS
     Dosage: 600 MG, 2X/DAY
     Route: 048
  2. PAROXETINE HYDROCHLORIDE [Concomitant]
     Indication: DEPRESSION
  3. OPIPRAMOL [Concomitant]
     Indication: DEPRESSION

REACTIONS (9)
  - ACNE [None]
  - DIARRHOEA [None]
  - HEADACHE [None]
  - OCULAR HYPERAEMIA [None]
  - ODYNOPHAGIA [None]
  - PAIN [None]
  - PRURITUS [None]
  - STOMATITIS [None]
  - URTICARIA [None]
